FAERS Safety Report 9252752 (Version 3)
Quarter: 2014Q2

REPORT INFORMATION
  Report Type: Spontaneous
  Country: US (occurrence: US)
  Receive Date: 20130424
  Receipt Date: 20140521
  Transmission Date: 20141212
  Serious: No
  Sender: FDA-Public Use
  Company Number: US-009507513-1304USA014201

PATIENT
  Sex: Male

DRUGS (4)
  1. PROPECIA [Suspect]
     Indication: ANDROGENETIC ALOPECIA
     Dosage: 1 MG, QD
     Route: 048
     Dates: start: 20020708, end: 200911
  2. FINASTERIDE [Suspect]
     Indication: ANDROGENETIC ALOPECIA
     Dosage: 5 MG, QD
     Route: 048
     Dates: start: 20091109, end: 20110909
  3. PROSCAR [Suspect]
     Indication: ANDROGENETIC ALOPECIA
     Dosage: 1.25 MG
     Route: 048
     Dates: start: 20091109
  4. PROSCAR [Suspect]
     Dosage: 1.66 MG QD
     Route: 048
     Dates: start: 20091109, end: 20100210

REACTIONS (11)
  - Anxiety [Not Recovered/Not Resolved]
  - Wrong technique in drug usage process [Unknown]
  - Drug administration error [Unknown]
  - Pityriasis rosea [Unknown]
  - Anogenital warts [Unknown]
  - Depression [Not Recovered/Not Resolved]
  - Sexual dysfunction [Not Recovered/Not Resolved]
  - Erectile dysfunction [Not Recovered/Not Resolved]
  - Libido decreased [Unknown]
  - Testicular pain [Unknown]
  - Therapeutic response decreased [Unknown]
